FAERS Safety Report 8102994-X (Version None)
Quarter: 2012Q1

REPORT INFORMATION
  Report Type: 
  Country: None (occurrence: None)
  Receive Date: 20120201
  Receipt Date: 20120125
  Transmission Date: 20120608
  Serious: Yes (Life-Threatening, Hospitalization)
  Sender: FDA-Public Use
  Company Number: US-CELGENEUS-163-21660-11112984

PATIENT
  Age: 44 Year
  Sex: Female
  Weight: 119.58 kg

DRUGS (16)
  1. METOPROLOL TARTRATE [Concomitant]
     Route: 065
  2. BEVACIZUMAB [Suspect]
     Indication: BREAST CANCER
     Dosage: 10 MILLIGRAM/KILOGRAM
     Route: 041
     Dates: start: 20110324
  3. FAMOTIDINE [Concomitant]
     Route: 065
  4. DOXORUBICIN HCL [Suspect]
     Dosage: 10 MILLIGRAM/SQ. METER
     Route: 065
     Dates: start: 20110324
  5. GUAIFENESIN [Concomitant]
     Route: 065
  6. CYCLOPHOSPHAMIDE [Suspect]
     Indication: BREAST CANCER
     Dosage: 600 MILLIGRAM/SQ. METER
     Route: 041
     Dates: start: 20110324
  7. ZOLPIDEM [Concomitant]
     Route: 065
  8. CEFEPIME [Concomitant]
     Route: 065
  9. FLUCONAZOLE [Concomitant]
     Route: 065
  10. PROCHLORPERAZINE [Concomitant]
     Route: 065
  11. BACITRACIN [Concomitant]
     Route: 065
  12. WHOLE BLOOD [Concomitant]
     Route: 041
  13. ABRAXANE [Suspect]
     Indication: BREAST CANCER
     Dosage: 80 MILLIGRAM/SQ. METER
     Route: 041
     Dates: start: 20110324
  14. NEULASTA [Suspect]
     Dosage: 6 MILLIGRAM
     Route: 065
     Dates: end: 20110825
  15. BENZONATATE [Concomitant]
     Route: 065
  16. ACETAMINOPHEN [Concomitant]
     Route: 065

REACTIONS (7)
  - LYMPHATIC DISORDER [None]
  - PLATELET COUNT DECREASED [None]
  - WHITE BLOOD CELL COUNT DECREASED [None]
  - FEBRILE NEUTROPENIA [None]
  - DIARRHOEA [None]
  - ANAEMIA [None]
  - CARDIAC DISORDER [None]
